FAERS Safety Report 6086393-0 (Version None)
Quarter: 2009Q1

REPORT INFORMATION
  Report Type: 
  Country: None (occurrence: None)
  Receive Date: 20090220
  Receipt Date: 20090206
  Transmission Date: 20090719
  Serious: Yes (Hospitalization)
  Sender: FDA-Public Use
  Company Number: FR-GENENTECH-276319

PATIENT
  Sex: Male

DRUGS (12)
  1. LUCENTIS [Suspect]
     Indication: MACULAR DEGENERATION
     Dosage: 0.5 MG, UNK
     Route: 031
     Dates: start: 20080228
  2. AMIODARONE [Concomitant]
     Indication: DRUG USE FOR UNKNOWN INDICATION
  3. KARDEGIC [Concomitant]
     Indication: DRUG USE FOR UNKNOWN INDICATION
  4. LESCOL [Concomitant]
     Indication: DRUG USE FOR UNKNOWN INDICATION
  5. SELENIUM [Concomitant]
     Indication: DRUG USE FOR UNKNOWN INDICATION
  6. FORADIL [Concomitant]
     Indication: DRUG USE FOR UNKNOWN INDICATION
  7. PULMICORT-100 [Concomitant]
     Indication: DRUG USE FOR UNKNOWN INDICATION
  8. SERETIDE [Concomitant]
     Indication: DRUG USE FOR UNKNOWN INDICATION
  9. LEVOTHYROX [Concomitant]
     Indication: DRUG USE FOR UNKNOWN INDICATION
  10. TANAKAN [Concomitant]
     Indication: DRUG USE FOR UNKNOWN INDICATION
  11. ISOPTIN [Concomitant]
     Indication: DRUG USE FOR UNKNOWN INDICATION
  12. STILNOX [Concomitant]
     Indication: DRUG USE FOR UNKNOWN INDICATION

REACTIONS (3)
  - ARTERIOSCLEROSIS [None]
  - CEREBROVASCULAR ACCIDENT [None]
  - VISUAL ACUITY REDUCED [None]
